FAERS Safety Report 7816256-9 (Version None)
Quarter: 2011Q4

REPORT INFORMATION
  Report Type: 
  Country: None (occurrence: None)
  Receive Date: 20111016
  Receipt Date: 20111003
  Transmission Date: 20120403
  Serious: Yes (Other)
  Sender: FDA-Public Use
  Company Number: US-MYLANLABS-2011S1020596

PATIENT
  Age: 22 Year
  Sex: Male

DRUGS (3)
  1. MODAFINIL [Suspect]
     Indication: NARCOLEPSY
     Dosage: 200MG EACH MORNING
     Route: 065
  2. VENLAFAXINE [Suspect]
     Indication: WAXY FLEXIBILITY
     Dosage: 75MG
     Route: 065
  3. MODAFINIL [Suspect]
     Dosage: 100MG AT MIDDAY ADDED FOR PERSISTENT AFTERNOON SYMPTOMS
     Route: 065

REACTIONS (4)
  - SEXUAL DYSFUNCTION [None]
  - GAMBLING [None]
  - CATAPLEXY [None]
  - MANIA [None]
